FAERS Safety Report 23147433 (Version 1)
Quarter: 2023Q4

REPORT INFORMATION
  Report Type: Spontaneous
  Country: JP (occurrence: JP)
  Receive Date: 20231106
  Receipt Date: 20231106
  Transmission Date: 20240110
  Serious: Yes (Death, Hospitalization, Other)
  Sender: FDA-Public Use
  Company Number: JP-Merck Healthcare KGaA-9377562

PATIENT
  Age: 55 Year
  Sex: Female

DRUGS (2)
  1. METGLUCO [Suspect]
     Active Substance: METFORMIN HYDROCHLORIDE
     Indication: Type 2 diabetes mellitus
     Route: 048
     Dates: start: 201902, end: 202210
  2. REPAGLINIDE [Concomitant]
     Active Substance: REPAGLINIDE
     Indication: Product used for unknown indication

REACTIONS (4)
  - Lactic acidosis [Fatal]
  - Pneumonia [Unknown]
  - Vogt-Koyanagi-Harada disease [Unknown]
  - Condition aggravated [Unknown]

NARRATIVE: CASE EVENT DATE: 20221101
